FAERS Safety Report 16916764 (Version 3)
Quarter: 2020Q2

REPORT INFORMATION
  Report Type: Spontaneous
  Country: GB (occurrence: GB)
  Receive Date: 20191015
  Receipt Date: 20200409
  Transmission Date: 20200713
  Serious: Yes (Hospitalization, Other)
  Sender: FDA-Public Use
  Company Number: GB-TEVA-2019-GB-1120770

PATIENT
  Age: 73 Year
  Sex: Male

DRUGS (3)
  1. FUSIDIC ACID [Interacting]
     Active Substance: FUSIDIC ACID
     Indication: WOUND INFECTION
     Route: 065
     Dates: start: 201806
  2. FLUCLOXACILLIN [Concomitant]
     Active Substance: FLUCLOXACILLIN
     Indication: WOUND INFECTION
  3. ATORVASTATIN [Suspect]
     Active Substance: ATORVASTATIN
     Indication: INFECTION
     Route: 065
     Dates: start: 201806

REACTIONS (5)
  - Drug interaction [Unknown]
  - Chromaturia [Unknown]
  - Myalgia [Unknown]
  - Blood creatine phosphokinase increased [Unknown]
  - Rhabdomyolysis [Unknown]
